FAERS Safety Report 4859264-2 (Version None)
Quarter: 2005Q4

REPORT INFORMATION
  Report Type: 
  Country: None (occurrence: None)
  Receive Date: 20051219
  Receipt Date: 20041108
  Transmission Date: 20060501
  Serious: No
  Sender: FDA-Public Use
  Company Number: US-GLAXOSMITHKLINE-A0533050A

PATIENT
  Sex: Female

DRUGS (9)
  1. NICODERM CQ [Suspect]
     Indication: DRUG USE FOR UNKNOWN INDICATION
  2. CARBAMAZEPINE [Concomitant]
  3. CARTIA XT [Concomitant]
  4. PROZAC [Concomitant]
  5. PHENYTEK [Concomitant]
  6. LIPITOR [Concomitant]
  7. ASPIRIN [Concomitant]
  8. CENTRUM [Concomitant]
  9. ADVAIR DISKUS 250/50 [Concomitant]

REACTIONS (1)
  - RASH [None]
